FAERS Safety Report 18332003 (Version 19)
Quarter: 2022Q2

REPORT INFORMATION
  Report Type: Spontaneous
  Country: US (occurrence: US)
  Receive Date: 20200930
  Receipt Date: 20220629
  Transmission Date: 20220720
  Serious: Yes (Other)
  Sender: FDA-Public Use
  Company Number: US-BIOVITRUM-2020US5155

PATIENT
  Age: 58 Year
  Sex: Female

DRUGS (21)
  1. KINERET [Suspect]
     Active Substance: ANAKINRA
     Indication: Pericardial disease
     Route: 058
     Dates: start: 20200922
  2. KINERET [Suspect]
     Active Substance: ANAKINRA
     Route: 058
     Dates: start: 20200922, end: 20201019
  3. XANAX [Concomitant]
     Active Substance: ALPRAZOLAM
  4. LAMISIL [Concomitant]
     Active Substance: TERBINAFINE HYDROCHLORIDE
  5. LYRICA [Concomitant]
     Active Substance: PREGABALIN
  6. ZYRTEC [Concomitant]
     Active Substance: CETIRIZINE HYDROCHLORIDE
  7. BIOTIN [Concomitant]
     Active Substance: BIOTIN
  8. PLAQUENIL [Concomitant]
     Active Substance: HYDROXYCHLOROQUINE SULFATE
  9. ECONAZOLE NITRATE [Concomitant]
     Active Substance: ECONAZOLE NITRATE
  10. TOPAMAX [Concomitant]
     Active Substance: TOPIRAMATE
  11. IMITREX [Concomitant]
     Active Substance: SUMATRIPTAN SUCCINATE
  12. PREDNISONE [Concomitant]
     Active Substance: PREDNISONE
  13. BACLOFEN [Concomitant]
     Active Substance: BACLOFEN
  14. VITAMIN B12 [Concomitant]
     Active Substance: CYANOCOBALAMIN
  15. PHOLIC ACIC [Concomitant]
  16. VITAMIN D3 [Concomitant]
     Active Substance: CHOLECALCIFEROL
  17. VOLTAREN [Concomitant]
     Active Substance: DICLOFENAC SODIUM
  18. TYLENOL [Concomitant]
     Active Substance: ACETAMINOPHEN
  19. METHOTREXATE [Concomitant]
     Active Substance: METHOTREXATE
  20. DEXILANT [Concomitant]
     Active Substance: DEXLANSOPRAZOLE
  21. BENTYL [Concomitant]
     Active Substance: DICYCLOMINE HYDROCHLORIDE

REACTIONS (38)
  - Renal impairment [Unknown]
  - Cellulitis [Unknown]
  - Localised infection [Unknown]
  - Anxiety [Unknown]
  - Back pain [Unknown]
  - Ligament sprain [Unknown]
  - Fatigue [Unknown]
  - Memory impairment [Unknown]
  - Stress [Unknown]
  - Urinary tract infection [Unknown]
  - Internal hernia [Unknown]
  - Stress at work [Unknown]
  - Pain [Unknown]
  - Abdominal pain [Unknown]
  - Nausea [Unknown]
  - Contusion [Unknown]
  - Mass [Unknown]
  - Vision blurred [Unknown]
  - Dry eye [Unknown]
  - Depression [Unknown]
  - Inflammation [Unknown]
  - Injection site rash [Unknown]
  - Injection site mass [Unknown]
  - Injection site discomfort [Unknown]
  - Injection site erythema [Unknown]
  - Injection site pruritus [Unknown]
  - Rash [Unknown]
  - Headache [Unknown]
  - Pruritus [Unknown]
  - Injection site haemorrhage [Unknown]
  - Injection site pain [Unknown]
  - Injection site warmth [Unknown]
  - Injection site induration [Unknown]
  - Injection site urticaria [Unknown]
  - Syringe issue [Unknown]
  - Product dose omission issue [Unknown]
  - Product dose omission in error [Unknown]
  - Off label use [Unknown]

NARRATIVE: CASE EVENT DATE: 20200922
